FAERS Safety Report 9179468 (Version 1)
Quarter: 2012Q4

REPORT INFORMATION
  Report Type: 
  Country: US (occurrence: US)
  Receive Date: 20121029
  Receipt Date: 20121029
  Transmission Date: 20130627
  Serious: Yes (Other)
  Sender: FDA-Public Use
  Company Number: US-ROCHE-1147830

PATIENT
  Age: 58 Year

DRUGS (1)
  1. RIBAVIRIN [Suspect]
     Indication: HEPATITIS C
     Route: 065

REACTIONS (5)
  - Cryoglobulinaemia [Recovered/Resolved]
  - Renal failure acute [Recovered/Resolved]
  - Purpura [Recovered/Resolved]
  - Arthralgia [Recovered/Resolved]
  - Pleural effusion [Recovered/Resolved]
